FAERS Safety Report 5938240-2 (Version None)
Quarter: 2008Q4

REPORT INFORMATION
  Report Type: 
  Country: None (occurrence: None)
  Receive Date: 20081031
  Receipt Date: 20081022
  Transmission Date: 20090506
  Serious: Yes (Hospitalization)
  Sender: FDA-Public Use
  Company Number: JP-PFIZER INC-2008089582

PATIENT
  Age: 79 Year
  Sex: Male

DRUGS (3)
  1. SOLU-CORTEF [Suspect]
     Indication: SUDDEN HEARING LOSS
     Dosage: DAILY DOSE:500MG
     Route: 042
     Dates: start: 20070821
  2. ADETPHOS [Concomitant]
  3. CARDIAC THERAPY [Concomitant]

REACTIONS (1)
  - ANGINA PECTORIS [None]
